FAERS Safety Report 4542998-7 (Version None)
Quarter: 2005Q1

REPORT INFORMATION
  Report Type: 
  Country: None (occurrence: None)
  Receive Date: 20050103
  Receipt Date: 20041222
  Transmission Date: 20050727
  Serious: Yes (Hospitalization)
  Sender: FDA-Public Use
  Company Number: CA-JNJFOC-20041206324

PATIENT
  Sex: Female
  Weight: 74 kg

DRUGS (2)
  1. REMICADE [Suspect]
     Indication: RHEUMATOID ARTHRITIS
     Dosage: RECEIVED TOTAL OF 20 DOSES
     Route: 042
  2. METHOTREXATE [Concomitant]
     Indication: RHEUMATOID ARTHRITIS
     Dosage: TAKING FOR YEARS
     Route: 049

REACTIONS (6)
  - DELIRIUM [None]
  - ESCHERICHIA INFECTION [None]
  - FALL [None]
  - HEAD INJURY [None]
  - PYREXIA [None]
  - WHITE BLOOD CELL COUNT INCREASED [None]
